FAERS Safety Report 12273622 (Version 1)
Quarter: 2016Q2

REPORT INFORMATION
  Report Type: Spontaneous
  Country: CA (occurrence: CA)
  Receive Date: 20160415
  Receipt Date: 20160415
  Transmission Date: 20160815
  Serious: Yes (Other)
  Sender: FDA-Public Use
  Company Number: CA-SA-2015SA090227

PATIENT
  Age: 67 Year
  Sex: Female

DRUGS (8)
  1. TYLENOL NO1 [Concomitant]
     Indication: ANALGESIC THERAPY
  2. ARAVA [Suspect]
     Active Substance: LEFLUNOMIDE
     Indication: RHEUMATOID ARTHRITIS
     Route: 048
  3. XELJANZ [Suspect]
     Active Substance: TOFACITINIB CITRATE
     Indication: RHEUMATOID ARTHRITIS
     Route: 048
     Dates: start: 20150625
  4. SODIUM AUROTHIOMALATE [Suspect]
     Active Substance: GOLD SODIUM THIOMALATE
     Route: 065
  5. ARAVA [Suspect]
     Active Substance: LEFLUNOMIDE
     Indication: RHEUMATOID ARTHRITIS
     Route: 065
  6. ARAVA [Suspect]
     Active Substance: LEFLUNOMIDE
     Indication: RHEUMATOID ARTHRITIS
     Dosage: DOSAGE:ONCE DAILY FOR 2 DAYS AND THEN ONE DAY OFF
     Route: 065
  7. ARAVA [Suspect]
     Active Substance: LEFLUNOMIDE
     Indication: RHEUMATOID ARTHRITIS
     Route: 048
     Dates: start: 201509, end: 201512
  8. GRAVOL [Concomitant]
     Active Substance: DIMENHYDRINATE
     Route: 048

REACTIONS (10)
  - Condition aggravated [Unknown]
  - Rash [Recovered/Resolved]
  - Blood pressure increased [Recovered/Resolved]
  - Nausea [Recovering/Resolving]
  - Disease recurrence [Unknown]
  - Chemical injury [Recovered/Resolved]
  - Rheumatoid arthritis [Unknown]
  - Influenza [Recovered/Resolved]
  - Tooth fracture [Unknown]
  - Muscle fatigue [Unknown]

NARRATIVE: CASE EVENT DATE: 201506
